FAERS Safety Report 4718168-6 (Version None)
Quarter: 2005Q3

REPORT INFORMATION
  Report Type: 
  Country: None (occurrence: None)
  Receive Date: 20050720
  Receipt Date: 19990115
  Transmission Date: 20060218
  Serious: Yes (Life-Threatening)
  Sender: FDA-Public Use
  Company Number: 1999AS00061

PATIENT
  Age: 79 Day
  Sex: Male
  Weight: 2.5 kg

DRUGS (1)
  1. ROPIVACAINE HYDROCHLORIDE [Suspect]
     Route: 008
     Dates: start: 19990112, end: 19990112

REACTIONS (3)
  - APNOEA [None]
  - BRADYCARDIA [None]
  - CYANOSIS [None]
